FAERS Safety Report 25821438 (Version 2)
Quarter: 2025Q4

REPORT INFORMATION
  Report Type: Spontaneous
  Country: US (occurrence: US)
  Receive Date: 20250919
  Receipt Date: 20251218
  Transmission Date: 20260117
  Serious: No
  Sender: Kenvue
  Company Number: US-KENVUE-20250808958

PATIENT
  Sex: Female

DRUGS (23)
  1. TYLENOL [Suspect]
     Active Substance: ACETAMINOPHEN
     Indication: Headache
     Route: 065
  2. TREPROSTINIL [Concomitant]
     Active Substance: TREPROSTINIL
     Indication: Pulmonary arterial hypertension
     Dosage: 0.25 MG,TID
     Route: 061
     Dates: start: 202409, end: 202409
  3. ORENITRAM [Concomitant]
     Active Substance: TREPROSTINIL
     Indication: Pulmonary arterial hypertension
     Dosage: UNK
     Route: 065
  4. ORENITRAM [Concomitant]
     Active Substance: TREPROSTINIL
     Dosage: 0.375 MG (1 TABLET OF 0.25 MG AND 0.125 MG EACH)
     Route: 061
     Dates: start: 202409, end: 2024
  5. ORENITRAM [Concomitant]
     Active Substance: TREPROSTINIL
     Dosage: 0.875 MG (1 TABLET OF 0.125 MG AND 3 TABLETS OF 0.25 MG)
     Route: 061
     Dates: start: 2024, end: 2024
  6. ORENITRAM [Concomitant]
     Active Substance: TREPROSTINIL
     Dosage: 1.375 MG, TID (1 TABLET OF 1 MG AND 3 TABLETS OF 0.125 MG)
     Route: 061
     Dates: start: 2024, end: 2024
  7. ORENITRAM [Concomitant]
     Active Substance: TREPROSTINIL
     Dosage: 1.75 MG (1 TABLET OF 1 MG AND 3 TABLETS OF 0.25 MG)
     Route: 061
     Dates: start: 2024
  8. ORENITRAM [Concomitant]
     Active Substance: TREPROSTINIL
     Dosage: 2.75 MG , TID
     Route: 061
     Dates: end: 202502
  9. ORENITRAM [Concomitant]
     Active Substance: TREPROSTINIL
     Dosage: 3 MG (1 TABLET OF 2.5 MG AND 2 TABLETS OF 0.25 MG)
     Route: 061
     Dates: start: 202502, end: 2025
  10. ORENITRAM [Concomitant]
     Active Substance: TREPROSTINIL
     Dosage: 3.5 MG (1 TABLET OF 2.5 MG AND 1 MG EACH)
     Route: 061
     Dates: start: 2025, end: 202503
  11. ORENITRAM [Concomitant]
     Active Substance: TREPROSTINIL
     Dosage: 3.75 MG (1 TABLET OF 0.25 MG, 1 MG AND 2.5 MG EACH)
     Route: 061
     Dates: start: 202503, end: 2025
  12. ORENITRAM [Concomitant]
     Active Substance: TREPROSTINIL
     Dosage: 4 MG (1 TABLET OF 2.5 MG AND 1 MG EACH AND 2 TABLETS OF 0.25 MG)
     Route: 061
     Dates: start: 2025, end: 2025
  13. ORENITRAM [Concomitant]
     Active Substance: TREPROSTINIL
     Dosage: 4.5 MG, TID
     Route: 061
     Dates: start: 2025, end: 2025
  14. ORENITRAM [Concomitant]
     Active Substance: TREPROSTINIL
     Dosage: 3.5 MG (1 TABLET OF 2.5 MG AND 1 MG EACH)
     Route: 061
     Dates: start: 2025
  15. ORENITRAM [Concomitant]
     Active Substance: TREPROSTINIL
     Dosage: UNK
     Route: 061
  16. ORENITRAM [Concomitant]
     Active Substance: TREPROSTINIL
     Dosage: 3 MG (1 TABLET OF 2.5 MG AND 2 TABLETS OF 0.25 MG)
     Route: 061
     Dates: start: 202509, end: 2025
  17. ORENITRAM [Concomitant]
     Active Substance: TREPROSTINIL
     Dosage: 2.5 MILLIGRAM, TWICE A DAY
     Route: 061
     Dates: end: 2025
  18. SILDENAFIL CITRATE [Concomitant]
     Active Substance: SILDENAFIL CITRATE
     Indication: Product used for unknown indication
     Route: 065
  19. IBUPROFEN [Concomitant]
     Active Substance: IBUPROFEN
     Indication: Headache
     Dosage: UNK
     Route: 065
  20. IBUPROFEN [Concomitant]
     Active Substance: IBUPROFEN
     Indication: Pain in extremity
  21. OPSUMIT [Concomitant]
     Active Substance: MACITENTAN
     Indication: Product used for unknown indication
     Route: 065
  22. BIOFREEZE [Concomitant]
     Active Substance: MENTHOL
     Indication: Arthralgia
     Route: 065
  23. WINREVAIR [Concomitant]
     Active Substance: SOTATERCEPT-CSRK
     Indication: Product used for unknown indication
     Route: 065

REACTIONS (1)
  - Product use in unapproved indication [Unknown]
